FAERS Safety Report 5604895-5 (Version None)
Quarter: 2008Q1

REPORT INFORMATION
  Report Type: 
  Country: None (occurrence: None)
  Receive Date: 20080128
  Receipt Date: 20080117
  Transmission Date: 20080703
  Serious: Yes (Death, Life-Threatening, Hospitalization)
  Sender: FDA-Public Use
  Company Number: DE-PFIZER INC-2007073192

PATIENT
  Sex: Female
  Weight: 13 kg

DRUGS (5)
  1. VFEND [Suspect]
     Indication: INFECTION PROPHYLAXIS
     Route: 048
  2. SANDIMMUNE [Suspect]
     Indication: COLITIS ULCERATIVE
     Route: 048
     Dates: start: 20070810, end: 20070822
  3. SANDIMMUNE [Suspect]
     Dosage: DAILY DOSE:60MG
     Route: 042
  4. COTRIM [Concomitant]
  5. CORTISONE [Concomitant]

REACTIONS (5)
  - COAGULOPATHY [None]
  - COMA HEPATIC [None]
  - HEPATIC FAILURE [None]
  - INTRA-ABDOMINAL HAEMORRHAGE [None]
  - RENAL FAILURE ACUTE [None]
